FAERS Safety Report 5646678-6 (Version None)
Quarter: 2008Q1

REPORT INFORMATION
  Report Type: 
  Country: None (occurrence: None)
  Receive Date: 20080303
  Receipt Date: 20080220
  Transmission Date: 20080703
  Serious: Yes (Hospitalization)
  Sender: FDA-Public Use
  Company Number: PHBS2008TW02521

PATIENT
  Sex: Male

DRUGS (3)
  1. ZOMETA [Suspect]
     Indication: METASTASES TO BONE
     Dosage: 4 MG, QMO
     Route: 042
  2. ZOMETA [Suspect]
     Route: 058
     Dates: start: 20080220, end: 20080220
  3. GONADORELIN ACETATE [Concomitant]
     Route: 058

REACTIONS (1)
  - INCORRECT ROUTE OF DRUG ADMINISTRATION [None]
